FAERS Safety Report 4735514-8 (Version None)
Quarter: 2005Q3

REPORT INFORMATION
  Report Type: 
  Country: None (occurrence: None)
  Receive Date: 20050801
  Receipt Date: 20050801
  Transmission Date: 20060218
  Serious: Yes (Hospitalization)
  Sender: FDA-Public Use
  Company Number: None

PATIENT
  Age: 50 Year
  Sex: Male
  Weight: 88.905 kg

DRUGS (1)
  1. GLYBURIDE [Suspect]
     Indication: DIABETES MELLITUS
     Dosage: 10MG PO BID
     Route: 048
     Dates: start: 20050427, end: 20050428

REACTIONS (6)
  - BLOOD GLUCOSE DECREASED [None]
  - FALL [None]
  - HEAD INJURY [None]
  - HEADACHE [None]
  - INADEQUATE DIET [None]
  - LIMB INJURY [None]
